FAERS Safety Report 11448829 (Version 1)
Quarter: 2015Q3

REPORT INFORMATION
  Report Type: Spontaneous
  Country: US (occurrence: US)
  Receive Date: 20150902
  Receipt Date: 20150902
  Transmission Date: 20151125
  Serious: No
  Sender: FDA-Public Use
  Company Number: US-GLAXOSMITHKLINE-US2015124810

PATIENT
  Sex: Female

DRUGS (1)
  1. LAMICTAL [Suspect]
     Active Substance: LAMOTRIGINE
     Indication: MIGRAINE
     Dosage: 25 MG, BID
     Route: 048

REACTIONS (2)
  - Rash [Recovered/Resolved]
  - Off label use [Unknown]
